FAERS Safety Report 7602678-8 (Version None)
Quarter: 2011Q3

REPORT INFORMATION
  Report Type: 
  Country: None (occurrence: None)
  Receive Date: 20110701
  Receipt Date: 20110307
  Transmission Date: 20111222
  Serious: Yes (Other)
  Sender: FDA-Public Use
  Company Number: SIM_00025_2011

PATIENT
  Sex: Female

DRUGS (1)
  1. TOPCARE SWIMMER'S AID (EAR) [Suspect]
     Indication: CONJUNCTIVITIS INFECTIVE
     Dosage: (DF OPHTHALMIC)
     Route: 047
     Dates: start: 20110303, end: 20110303

REACTIONS (3)
  - EYE PAIN [None]
  - WRONG DRUG ADMINISTERED [None]
  - SCREAMING [None]
